FAERS Safety Report 8772059 (Version 2)
Quarter: 2013Q4

REPORT INFORMATION
  Report Type: Spontaneous
  Country: US (occurrence: US)
  Receive Date: 20120906
  Receipt Date: 20131101
  Transmission Date: 20140711
  Serious: No
  Sender: FDA-Public Use
  Company Number: US-009507513-1208USA001108

PATIENT
  Sex: Female

DRUGS (4)
  1. PEGINTRON [Suspect]
     Dosage: UNK
     Dates: start: 201204
  2. RIBASPHERE [Suspect]
  3. ATRIPLA [Concomitant]
  4. PANTOTHENIC ACID [Concomitant]

REACTIONS (6)
  - Pain [Unknown]
  - Pain [Unknown]
  - Tremor [Unknown]
  - Headache [Unknown]
  - Depression [Unknown]
  - Weight decreased [Unknown]
